FAERS Safety Report 12400015 (Version 1)
Quarter: 2016Q2

REPORT INFORMATION
  Report Type: Spontaneous
  Country: CN (occurrence: CN)
  Receive Date: 20160524
  Receipt Date: 20160524
  Transmission Date: 20160815
  Serious: Yes (Other)
  Sender: FDA-Public Use
  Company Number: PHHY2016CN070259

PATIENT
  Age: 70 Year
  Sex: Female

DRUGS (3)
  1. BETALOC [Suspect]
     Active Substance: METOPROLOL TARTRATE
     Indication: PRODUCT USED FOR UNKNOWN INDICATION
     Dosage: 0.5 DF, QD (MORNING)
     Route: 065
  2. DIOVAN [Suspect]
     Active Substance: VALSARTAN
     Indication: HYPERTENSION
     Dosage: 1 DF, QD (IN THE MORNING)
     Route: 065
  3. DIOVAN [Suspect]
     Active Substance: VALSARTAN
     Dosage: 1 DF, QD (IN THE EVENING)
     Route: 065

REACTIONS (5)
  - Tachycardia [Unknown]
  - Tension [Unknown]
  - Arrhythmia [Unknown]
  - Drug ineffective [Unknown]
  - Blood pressure increased [Unknown]
